FAERS Safety Report 9897975 (Version 1)
Quarter: 2014Q1

REPORT INFORMATION
  Report Type: Spontaneous
  Country: US (occurrence: US)
  Receive Date: 20140214
  Receipt Date: 20140214
  Transmission Date: 20141002
  Serious: No
  Sender: FDA-Public Use
  Company Number: US-PFIZER INC-2014040611

PATIENT
  Sex: Female

DRUGS (2)
  1. TIKOSYN [Suspect]
     Dosage: UNK
  2. PRILOSEC [Suspect]
     Indication: ABDOMINAL DISCOMFORT
     Dosage: UNK
     Dates: start: 2013

REACTIONS (6)
  - Hyperhidrosis [Unknown]
  - Thirst [Unknown]
  - Night sweats [Unknown]
  - Dyspepsia [Unknown]
  - Electrolyte imbalance [Unknown]
  - Drug ineffective [Unknown]
